FAERS Safety Report 5003390-4 (Version None)
Quarter: 2006Q2

REPORT INFORMATION
  Report Type: 
  Country: None (occurrence: None)
  Receive Date: 20060511
  Receipt Date: 20060426
  Transmission Date: 20061013
  Serious: Yes (Hospitalization)
  Sender: FDA-Public Use
  Company Number: 2006061033

PATIENT
  Age: 16 Year
  Sex: Female

DRUGS (3)
  1. VIRACEPT [Suspect]
     Indication: PROPHYLAXIS
     Dosage: (2 IN 1 D), ORAL
     Route: 048
     Dates: start: 20060307, end: 20060316
  2. COMBIVIR [Suspect]
     Indication: ILL-DEFINED DISORDER
  3. VIREAD [Suspect]
     Indication: ILL-DEFINED DISORDER

REACTIONS (2)
  - PYREXIA [None]
  - URTICARIA GENERALISED [None]
